FAERS Safety Report 12267458 (Version 1)
Quarter: 2016Q2

REPORT INFORMATION
  Report Type: Spontaneous
  Country: US (occurrence: US)
  Receive Date: 20160414
  Receipt Date: 20160414
  Transmission Date: 20160815
  Serious: No
  Sender: FDA-Public Use
  Company Number: US-009507513-1604USA008217

PATIENT
  Age: 18 Year
  Sex: Female
  Weight: 68.48 kg

DRUGS (1)
  1. NEXPLANON [Suspect]
     Active Substance: ETONOGESTREL
     Indication: CONTRACEPTION
     Dosage: IN THE LEFT ARM, 3 YEAR IMPLANT
     Route: 059
     Dates: start: 20141101

REACTIONS (4)
  - Blood potassium decreased [Unknown]
  - Dyspnoea [Unknown]
  - Panic attack [Unknown]
  - Haemorrhage [Unknown]

NARRATIVE: CASE EVENT DATE: 201411
